FAERS Safety Report 15891179 (Version 1)
Quarter: 2019Q1

REPORT INFORMATION
  Report Type: Spontaneous
  Country: PT (occurrence: PT)
  Receive Date: 20190130
  Receipt Date: 20190130
  Transmission Date: 20190417
  Serious: Yes (Hospitalization, Other)
  Sender: FDA-Public Use
  Company Number: PT-MYLANLABS-2019M1008067

PATIENT
  Age: 67 Year
  Sex: Male

DRUGS (18)
  1. ASCORBIC ACID. [Concomitant]
     Active Substance: ASCORBIC ACID
     Dosage: 60 MILLIGRAM
     Dates: end: 2012
  2. VITAMIN E                          /00110501/ [Concomitant]
     Active Substance: TOCOPHEROL
     Dosage: 20 MILLIGRAM
     Dates: end: 2012
  3. COLOSTRUM [Interacting]
     Active Substance: DIETARY SUPPLEMENT
     Indication: PRODUCT USED FOR UNKNOWN INDICATION
     Dosage: 650 MILLIGRAM, QD
     Dates: end: 2012
  4. VITAMIN A                          /00056001/ [Concomitant]
     Active Substance: RETINOL
     Dosage: 1.5 MILLIGRAM
     Dates: end: 2012
  5. MILK THISTLE                       /01131701/ [Concomitant]
     Active Substance: DIETARY SUPPLEMENT\HERBALS\MILK THISTLE
     Dosage: 300 MILLIGRAM
     Dates: end: 2012
  6. ATORVASTATIN [Concomitant]
     Active Substance: ATORVASTATIN
     Dosage: UNK
     Dates: end: 20120322
  7. TIOTROPIUM BROMIDE [Concomitant]
     Active Substance: TIOTROPIUM BROMIDE
     Dosage: UNK
     Dates: end: 20120322
  8. CHLORELLA                          /01723301/ [Interacting]
     Active Substance: CHLORELLA VULGARIS
     Indication: PRODUCT USED FOR UNKNOWN INDICATION
     Dosage: PILLS
     Dates: end: 2012
  9. BUDESONIDE. [Concomitant]
     Active Substance: BUDESONIDE
     Dosage: UNK
     Dates: end: 20120322
  10. ZINC SULFATE [Concomitant]
     Active Substance: ZINC SULFATE\ZINC SULFATE ANHYDROUS
     Dosage: 5.5 MILLIGRAM
  11. CURCUMA LONGA [Interacting]
     Active Substance: HERBALS\TURMERIC
     Dosage: 15 GRAM, QD
     Route: 048
     Dates: end: 2012
  12. METFORMIN HYDROCHLORIDE W/SITAGLIPTIN [Concomitant]
     Active Substance: METFORMIN HYDROCHLORIDE\SITAGLIPTIN PHOSPHATE
     Dosage: UNK
     Dates: end: 2012
  13. ALFUZOSIN [Concomitant]
     Active Substance: ALFUZOSIN
     Dosage: UNK
     Dates: end: 20120322
  14. PACLITAXEL. [Suspect]
     Active Substance: PACLITAXEL
     Indication: LUNG NEOPLASM MALIGNANT
     Dosage: SIX WEEKS WITH BI-MONTHLY FREQUENCY
     Dates: end: 2012
  15. CARBOPLATIN. [Concomitant]
     Active Substance: CARBOPLATIN
     Indication: LUNG NEOPLASM MALIGNANT
     Dosage: SIX WEEKS WITH BI-MONTHLY FREQUENCY
     Dates: end: 2012
  16. FORMOTEROL [Concomitant]
     Active Substance: FORMOTEROL
     Dosage: UNK
     Dates: end: 20120322
  17. SELENIUM [Concomitant]
     Active Substance: SELENIUM
     Dosage: 50 MICROGRAM
  18. SILYMARIN [Concomitant]
     Active Substance: DIETARY SUPPLEMENT\HERBALS\MILK THISTLE
     Dosage: 30 MINUTES BEFORE MEALS
     Dates: end: 2012

REACTIONS (5)
  - Toxicity to various agents [Recovered/Resolved]
  - Drug interaction [Recovered/Resolved]
  - Hepatitis toxic [Recovered/Resolved]
  - Jaundice [Recovered/Resolved]
  - Asthenia [Recovered/Resolved]
